FAERS Safety Report 8781212 (Version 2)
Quarter: 2012Q4

REPORT INFORMATION
  Report Type: 
  Country: GB (occurrence: GB)
  Receive Date: 20120913
  Receipt Date: 20121205
  Transmission Date: 20130627
  Serious: Yes (Other)
  Sender: FDA-Public Use
  Company Number: GB-009507513-0907GBR00027

PATIENT
  Sex: Female

DRUGS (5)
  1. ISENTRESS [Suspect]
     Indication: HIV INFECTION
     Dosage: 400 mg, bid
     Route: 048
     Dates: start: 20090319
  2. PREZISTA [Suspect]
     Dosage: 600 mg, bid
     Route: 048
     Dates: start: 20090310
  3. ZIDOVUDINE [Suspect]
     Dates: start: 20090318
  4. DARUNAVIR (+) RITONAVIR [Concomitant]
     Dosage: 600 mg, bid
     Route: 048
     Dates: start: 20090310
  5. TRUVADA [Concomitant]

REACTIONS (2)
  - Complication of delivery [Recovered/Resolved]
  - Maternal exposure timing unspecified [Recovered/Resolved]
